FAERS Safety Report 9777656 (Version 1)
Quarter: 2013Q4

REPORT INFORMATION
  Report Type: Spontaneous
  Country: FR (occurrence: FR)
  Receive Date: 20131223
  Receipt Date: 20131223
  Transmission Date: 20140711
  Serious: Yes (Hospitalization)
  Sender: FDA-Public Use
  Company Number: FR-ROCHE-1320828

PATIENT
  Age: 60 Year
  Sex: Female

DRUGS (6)
  1. AVASTIN [Suspect]
     Indication: METASTASES TO BONE
     Dosage: 10 COURSES ADMINISTERED
     Route: 041
     Dates: start: 20120827
  2. AVASTIN [Suspect]
     Indication: METASTASES TO LYMPH NODES
     Dosage: MAINTAINENCE THERAPY
     Route: 041
     Dates: start: 20130621
  3. PNEUMO 23 [Suspect]
     Indication: IMMUNISATION
     Route: 030
     Dates: start: 20130924, end: 20130924
  4. AROMASIN [Suspect]
     Indication: METASTASES TO BONE
     Route: 048
     Dates: start: 20130823
  5. LEVOTHYROX [Concomitant]
  6. TAXOL [Concomitant]
     Indication: METASTASES TO BONE
     Dosage: 10 COURSES IN TOTAL
     Route: 065

REACTIONS (1)
  - Cerebellar syndrome [Recovered/Resolved]
